FAERS Safety Report 18241239 (Version 1)
Quarter: 2020Q3

REPORT INFORMATION
  Report Type: Spontaneous
  Country: US (occurrence: US)
  Receive Date: 20200906
  Receipt Date: 20200906
  Transmission Date: 20201103
  Serious: Yes (Disabling)
  Sender: FDA-Public Use
  Company Number: None

PATIENT
  Age: 57 Year
  Sex: Female
  Weight: 56.25 kg

DRUGS (12)
  1. METHYL B COMPLEX [Concomitant]
  2. TURMERIC [Concomitant]
     Active Substance: HERBALS\TURMERIC
  3. NATURE?THROID [Suspect]
     Active Substance: THYROID, PORCINE
     Indication: AUTOIMMUNE THYROIDITIS
     Dosage: ?          QUANTITY:30 TABLET(S);?
     Route: 048
     Dates: start: 20151201, end: 20200906
  4. ENTYVIO [Concomitant]
     Active Substance: VEDOLIZUMAB
  5. DEXTROAMPHETAMINE ER [Concomitant]
  6. VALACYCLOVIR [Concomitant]
     Active Substance: VALACYCLOVIR HYDROCHLORIDE
  7. MULTI VITAMIN [Concomitant]
     Active Substance: VITAMINS
  8. SERRAPEPTASE [Concomitant]
     Active Substance: SERRAPEPTASE
  9. VIT D [Concomitant]
     Active Substance: VITAMIN D NOS
  10. NAC (ACETYLCYSTEIN) [Concomitant]
     Active Substance: ACETYLCYSTEINE
  11. GLUTATHIONE [Concomitant]
     Active Substance: GLUTATHIONE
  12. VITAMIN C [Concomitant]
     Active Substance: ASCORBIC ACID

REACTIONS (7)
  - Chest pain [None]
  - Recalled product administered [None]
  - Alopecia [None]
  - Fatigue [None]
  - Dry skin [None]
  - Weight increased [None]
  - Night sweats [None]

NARRATIVE: CASE EVENT DATE: 20200801
